FAERS Safety Report 15310854 (Version 2)
Quarter: 2018Q3

REPORT INFORMATION
  Report Type: Spontaneous
  Country: US (occurrence: US)
  Receive Date: 20180823
  Receipt Date: 20180828
  Transmission Date: 20181010
  Serious: Yes (Other)
  Sender: FDA-Public Use
  Company Number: US-PFIZER INC-2018336070

PATIENT
  Age: 31 Year
  Sex: Female
  Weight: 77.98 kg

DRUGS (1)
  1. LIOTHYRONINE SODIUM. [Suspect]
     Active Substance: LIOTHYRONINE SODIUM
     Dosage: 50 UG, DAILY
     Route: 048
     Dates: start: 2008, end: 2008

REACTIONS (11)
  - Myocardial infarction [Unknown]
  - Dyspnoea [Recovered/Resolved]
  - Blood thyroid stimulating hormone increased [Unknown]
  - Product use issue [Unknown]
  - Migraine [Recovered/Resolved]
  - Drug hypersensitivity [Not Recovered/Not Resolved]
  - Hypothyroidism [Recovered/Resolved]
  - Intentional product misuse [Unknown]
  - Feeling abnormal [Recovered/Resolved]
  - Drug ineffective [Unknown]
  - Insomnia [Unknown]

NARRATIVE: CASE EVENT DATE: 2008
